FAERS Safety Report 4514666-9 (Version None)
Quarter: 2004Q4

REPORT INFORMATION
  Report Type: 
  Country: None (occurrence: None)
  Receive Date: 20041126
  Receipt Date: 20041109
  Transmission Date: 20050328
  Serious: Yes (Hospitalization)
  Sender: FDA-Public Use
  Company Number: DSA_25392_2004

PATIENT
  Age: 22 Year
  Sex: Female

DRUGS (3)
  1. TAVOR [Suspect]
     Dosage: 5 MG ONCE PO
     Route: 048
     Dates: start: 20041104, end: 20041104
  2. CHLORPROTHIXENE [Suspect]
     Dosage: 800 MG ONCE PO
     Route: 048
     Dates: start: 20041104, end: 20041104
  3. ZUCLOPENTHIXOL [Suspect]
     Dosage: 15 MG ONCE PO
     Route: 048
     Dates: start: 20041104, end: 20041104

REACTIONS (3)
  - FATIGUE [None]
  - MULTIPLE DRUG OVERDOSE INTENTIONAL [None]
  - TACHYCARDIA [None]
